FAERS Safety Report 10207915 (Version 1)
Quarter: 2014Q2

REPORT INFORMATION
  Report Type: Spontaneous
  Country: US (occurrence: US)
  Receive Date: 20140530
  Receipt Date: 20140530
  Transmission Date: 20141212
  Serious: No
  Sender: FDA-Public Use
  Company Number: US-GLAXOSMITHKLINE-A1064882A

PATIENT
  Age: 43 Year
  Sex: Female

DRUGS (1)
  1. VENTOLIN [Suspect]
     Indication: COUGH
     Dosage: 2PUFF SIX TIMES PER DAY
     Route: 055

REACTIONS (6)
  - Condition aggravated [Recovering/Resolving]
  - Productive cough [Unknown]
  - Dysphonia [Recovered/Resolved]
  - Fatigue [Unknown]
  - Drug ineffective [Recovering/Resolving]
  - Product quality issue [Unknown]
